FAERS Safety Report 8450542-7 (Version None)
Quarter: 2012Q2

REPORT INFORMATION
  Report Type: 
  Country: None (occurrence: None)
  Receive Date: 20120620
  Receipt Date: 20120608
  Transmission Date: 20120825
  Serious: No
  Sender: FDA-Public Use
  Company Number: US-ASTRAZENECA-2011SE71060

PATIENT
  Age: 64 Year
  Sex: Female

DRUGS (21)
  1. NYSTATIN [Concomitant]
  2. NEURONTIN [Concomitant]
  3. TOPROL-XL [Suspect]
     Route: 048
     Dates: start: 20111229
  4. AUGMENTIN '125' [Concomitant]
  5. METOPROLOL TARTRATE [Concomitant]
  6. PLAVIX [Concomitant]
  7. XANAX [Concomitant]
  8. BACTRIM DS [Concomitant]
  9. LANTUS [Concomitant]
  10. LIPITOR [Concomitant]
  11. NITROGLYCERIN [Concomitant]
     Indication: PAIN
  12. FERROUS SULFATE TAB [Concomitant]
  13. LASIX [Concomitant]
  14. NIACIN [Concomitant]
  15. ZESTRIL [Suspect]
     Route: 048
     Dates: start: 20111230
  16. NITROGLYCERIN [Concomitant]
     Indication: ANGINA PECTORIS
  17. VITAMIN D [Concomitant]
  18. PREDNISONE [Concomitant]
  19. NEXIUM [Suspect]
     Route: 048
     Dates: start: 20111229
  20. KAYEXALATE [Concomitant]
  21. ZOLOFT [Concomitant]

REACTIONS (9)
  - CORONARY ARTERY DISEASE [None]
  - GOUT [None]
  - TYPE 1 DIABETES MELLITUS [None]
  - BREAST DISORDER [None]
  - MITRAL VALVE INCOMPETENCE [None]
  - HYPERTENSION [None]
  - HELICOBACTER INFECTION [None]
  - HYPERLIPIDAEMIA [None]
  - DIABETIC NEUROPATHY [None]
